FAERS Safety Report 8029397-0 (Version None)
Quarter: 2012Q1

REPORT INFORMATION
  Report Type: 
  Country: None (occurrence: None)
  Receive Date: 20120106
  Receipt Date: 20111219
  Transmission Date: 20120608
  Serious: Yes (Other)
  Sender: FDA-Public Use
  Company Number: CHPA2011US018390

PATIENT
  Age: 31 Year
  Sex: Female

DRUGS (1)
  1. NICOTINE [Suspect]
     Indication: SMOKING CESSATION THERAPY
     Dosage: 21 MG, QD
     Route: 062
     Dates: start: 20111216, end: 20111218

REACTIONS (9)
  - HALLUCINATION, VISUAL [None]
  - HEADACHE [None]
  - HYPERHIDROSIS [None]
  - HALLUCINATION, AUDITORY [None]
  - MALAISE [None]
  - INSOMNIA [None]
  - COLD SWEAT [None]
  - TOBACCO POISONING [None]
  - ABDOMINAL DISCOMFORT [None]
